FAERS Safety Report 9735280 (Version 1)
Quarter: 2013Q4

REPORT INFORMATION
  Report Type: Spontaneous
  Country: US (occurrence: US)
  Receive Date: 20131206
  Receipt Date: 20131206
  Transmission Date: 20140711
  Serious: Yes (Hospitalization, Other)
  Sender: FDA-Public Use
  Company Number: US-009507513-1312USA000951

PATIENT
  Age: 79 Year
  Sex: Female

DRUGS (2)
  1. HEXADROL TABLETS [Suspect]
     Indication: PLASMA CELL MYELOMA
     Dosage: 40 MG (4 MG, 1 IN ONE WEEK)
     Route: 048
     Dates: start: 20131106
  2. REVLIMID [Suspect]
     Indication: PLASMA CELL MYELOMA
     Dosage: 25 MG (25 MG, 21 IN 28 D)
     Route: 048
     Dates: start: 20131106

REACTIONS (1)
  - Dehydration [Unknown]
